FAERS Safety Report 26213427 (Version 1)
Quarter: 2025Q4

REPORT INFORMATION
  Report Type: Spontaneous
  Country: EU (occurrence: EU)
  Receive Date: 20251230
  Receipt Date: 20251230
  Transmission Date: 20260118
  Serious: Yes (Hospitalization, Other)
  Sender: MERCK SHARP & DOHME LLC
  Company Number: EU-009507513-2360280

PATIENT
  Age: 81 Year
  Sex: Male

DRUGS (1)
  1. PEMBROLIZUMAB [Suspect]
     Active Substance: PEMBROLIZUMAB
     Indication: Oropharyngeal cancer
     Dates: start: 202502

REACTIONS (10)
  - Polymyalgia rheumatica [Unknown]
  - Cachexia [Unknown]
  - Nodal osteoarthritis [Unknown]
  - Hypothyroidism [Unknown]
  - Osteoarthritis [Unknown]
  - Tendon disorder [Unknown]
  - Tendon rupture [Unknown]
  - Adrenal insufficiency [Unknown]
  - Muscle tightness [Unknown]
  - Bursitis [Unknown]

NARRATIVE: CASE EVENT DATE: 20250101
